FAERS Safety Report 23716249 (Version 1)
Quarter: 2024Q2

REPORT INFORMATION
  Report Type: Spontaneous
  Country: JP (occurrence: JP)
  Receive Date: 20240408
  Receipt Date: 20240408
  Transmission Date: 20240716
  Serious: Yes (Hospitalization, Other)
  Sender: FDA-Public Use
  Company Number: JP-ALKEM LABORATORIES LIMITED-US-ALKEM-2024-03051

PATIENT
  Age: 36 Year
  Sex: Female

DRUGS (1)
  1. IBUPROFEN [Suspect]
     Active Substance: IBUPROFEN
     Indication: Headache
     Dosage: UNK, QID
     Route: 065

REACTIONS (4)
  - Erythema multiforme [Recovering/Resolving]
  - Drug-induced liver injury [Recovered/Resolved]
  - Hypersensitivity [Recovering/Resolving]
  - Gastrointestinal disorder [Unknown]
